FAERS Safety Report 17009333 (Version 1)
Quarter: 2019Q4

REPORT INFORMATION
  Report Type: Spontaneous
  Country: US (occurrence: US)
  Receive Date: 20190927
  Receipt Date: 20190927
  Transmission Date: 20200122
  Serious: Yes (Hospitalization)
  Sender: FDA-Public Use
  Company Number: None

PATIENT
  Age: 7 Year
  Sex: Female
  Weight: 25.6 kg

DRUGS (3)
  1. CARBOPLATIN. [Suspect]
     Active Substance: CARBOPLATIN
     Dates: end: 20190611
  2. DOXORUBICIN HYDROCHORIDE [Suspect]
     Active Substance: DOXORUBICIN HYDROCHLORIDE
     Dates: end: 20190611
  3. ZINECARD [Suspect]
     Active Substance: DEXRAZOXANE HYDROCHLORIDE
     Dates: end: 20190611

REACTIONS (19)
  - Nasal congestion [None]
  - Hypertension [None]
  - Pancytopenia [None]
  - Abdominal pain [None]
  - Bile duct obstruction [None]
  - Alanine aminotransferase increased [None]
  - Gamma-glutamyltransferase increased [None]
  - Clostridium difficile colitis [None]
  - Haemolytic anaemia [None]
  - Hypoalbuminaemia [None]
  - Hypophagia [None]
  - Viraemia [None]
  - Rhinorrhoea [None]
  - Aspartate aminotransferase increased [None]
  - Febrile neutropenia [None]
  - Liver transplant [None]
  - Constipation [None]
  - Gastrointestinal inflammation [None]
  - Thrombocytopenia [None]

NARRATIVE: CASE EVENT DATE: 20190823
